FAERS Safety Report 18606887 (Version 2)
Quarter: 2023Q2

REPORT INFORMATION
  Report Type: Report from Study
  Country: US (occurrence: US)
  Receive Date: 20201211
  Receipt Date: 20230630
  Transmission Date: 20230721
  Serious: Yes (Hospitalization)
  Sender: FDA-Public Use
  Company Number: US-UNITED THERAPEUTICS-UNT-2020-019177

PATIENT
  Age: 14 Month
  Sex: Female
  Weight: 7.88 kg

DRUGS (18)
  1. UNITUXIN [Suspect]
     Active Substance: DINUTUXIMAB
     Indication: Neuroblastoma
     Dosage: 27.2 MG/M2, CYCLICAL, TOTAL DOSE IN CYCLE 5
     Route: 041
     Dates: start: 202005, end: 20200518
  2. UNITUXIN [Suspect]
     Active Substance: DINUTUXIMAB
     Dosage: 17.5 MG/M2, CYCLICAL (DURING CYCLE 3 AND 4 AND POST-CONSOLIDATION THERAPY)
     Route: 041
     Dates: start: 2020
  3. UNITUXIN [Suspect]
     Active Substance: DINUTUXIMAB
     Dosage: 6.8 MG, CYCLICAL
     Route: 041
  4. ETOPOSIDE [Suspect]
     Active Substance: ETOPOSIDE
     Indication: Neuroblastoma
     Dosage: 180 MG/M2, CYCLICAL, TOTAL DOSE IN CYCLE 5
     Route: 041
     Dates: start: 202005, end: 20200516
  5. ETOPOSIDE [Suspect]
     Active Substance: ETOPOSIDE
     Dosage: 200 MG/M2, CYCLICAL, CYCLICAL 3
     Route: 041
     Dates: start: 2020
  6. ETOPOSIDE [Suspect]
     Active Substance: ETOPOSIDE
     Dosage: 60 MG, CYCLICAL
     Route: 041
  7. CISPLATIN [Suspect]
     Active Substance: CISPLATIN
     Indication: Neuroblastoma
     Dosage: 54 MG/M2, CYCLICAL TOTAL DOSE IN CYCLE 5
     Route: 041
     Dates: start: 202005, end: 20200515
  8. CISPLATIN [Suspect]
     Active Substance: CISPLATIN
     Dosage: 60 MG/M2, CYCLICAL, CYCLE 3
     Route: 041
     Dates: start: 2020
  9. CISPLATIN [Suspect]
     Active Substance: CISPLATIN
     Dosage: 18 MG, CYCLICAL
     Route: 041
  10. CHOLECALCIFEROL [Concomitant]
     Active Substance: CHOLECALCIFEROL
     Indication: Product used for unknown indication
     Dosage: UNK
     Route: 065
  11. GLUTAMINE [Concomitant]
     Active Substance: GLUTAMINE
     Indication: Product used for unknown indication
     Dosage: UNK
     Route: 065
  12. GRANISETRON HYDROCHLORIDE [Concomitant]
     Active Substance: GRANISETRON HYDROCHLORIDE
     Indication: Product used for unknown indication
     Dosage: UNK
     Route: 065
  13. LORAZEPAM [Concomitant]
     Active Substance: LORAZEPAM
     Indication: Product used for unknown indication
     Dosage: UNK
     Route: 065
  14. POLYETHYLENE GLYCOL [Concomitant]
     Active Substance: POLYETHYLENE GLYCOL
     Indication: Product used for unknown indication
     Dosage: UNK
     Route: 065
  15. SARGRAMOSTIM [Concomitant]
     Active Substance: SARGRAMOSTIM
     Indication: Product used for unknown indication
     Dosage: UNK
     Route: 065
  16. POTASSIUM PHOSPHATE, DIBASIC [Concomitant]
     Active Substance: POTASSIUM PHOSPHATE, DIBASIC
     Indication: Product used for unknown indication
     Dosage: UNK
     Route: 065
  17. SULFAMETHOXAZOLE\TRIMETHOPRIM [Concomitant]
     Active Substance: SULFAMETHOXAZOLE\TRIMETHOPRIM
     Indication: Product used for unknown indication
     Dosage: UNK
     Route: 065
  18. POTASSIUM IODIDE [Concomitant]
     Active Substance: POTASSIUM IODIDE
     Indication: Product used for unknown indication
     Dosage: UNK
     Route: 065

REACTIONS (1)
  - Ascites [Unknown]

NARRATIVE: CASE EVENT DATE: 20200523
